FAERS Safety Report 11563623 (Version 1)
Quarter: 2015Q3

REPORT INFORMATION
  Report Type: Spontaneous
  Country: US (occurrence: US)
  Receive Date: 20150928
  Receipt Date: 20150928
  Transmission Date: 20151125
  Serious: No
  Sender: FDA-Public Use
  Company Number: US-PFIZER INC-2015321214

PATIENT
  Age: 6 Year
  Sex: Female
  Weight: 16 kg

DRUGS (2)
  1. MIRALAX [Concomitant]
     Active Substance: POLYETHYLENE GLYCOL 3350
     Dosage: UNK
  2. GENOTROPIN [Suspect]
     Active Substance: SOMATROPIN
     Indication: GROWTH HORMONE DEFICIENCY
     Dosage: 0.7 MG, DAILY, (INJECT 0.7MG UNDER THE SKIN)
     Route: 059
     Dates: start: 20150114

REACTIONS (2)
  - Melanocytic naevus [Unknown]
  - Injection site injury [Recovered/Resolved]
